FAERS Safety Report 16589732 (Version 1)
Quarter: 2019Q3

REPORT INFORMATION
  Report Type: Other
  Country: US (occurrence: US)
  Receive Date: 20190718
  Receipt Date: 20190718
  Transmission Date: 20191004
  Serious: No
  Sender: FDA-Public Use
  Company Number: US-SWEDISH ORPHAN BIOVITRUM-2019US0791

PATIENT
  Sex: Female

DRUGS (13)
  1. KINERET [Suspect]
     Active Substance: ANAKINRA
     Indication: POLYARTHRITIS
     Route: 058
     Dates: start: 20190322
  2. ASPIRIN. [Concomitant]
     Active Substance: ASPIRIN
  3. PREDNISONE. [Concomitant]
     Active Substance: PREDNISONE
  4. SINGULAIR [Concomitant]
     Active Substance: MONTELUKAST SODIUM
  5. ALLEGRA [Concomitant]
     Active Substance: FEXOFENADINE HYDROCHLORIDE
  6. METOPROLOL. [Concomitant]
     Active Substance: METOPROLOL
  7. METFORMIN [Concomitant]
     Active Substance: METFORMIN HYDROCHLORIDE
  8. FOSAMAX [Concomitant]
     Active Substance: ALENDRONATE SODIUM
  9. MAGNESIUM [Concomitant]
     Active Substance: MAGNESIUM
  10. POTASSIUM [Concomitant]
     Active Substance: POTASSIUM
  11. BUMEX [Concomitant]
     Active Substance: BUMETANIDE
  12. VITAMIN D3 [Concomitant]
     Active Substance: CHOLECALCIFEROL
  13. RANITIDINE. [Concomitant]
     Active Substance: RANITIDINE

REACTIONS (10)
  - Peripheral swelling [Unknown]
  - Fatigue [Unknown]
  - Off label use [Unknown]
  - Injection site erythema [Unknown]
  - Injection site pain [Unknown]
  - Injection site swelling [Unknown]
  - Injection site bruising [Unknown]
  - Injection site vesicles [Unknown]
  - Headache [Unknown]
  - Injection site reaction [Unknown]
